FAERS Safety Report 15423718 (Version 3)
Quarter: 2019Q2

REPORT INFORMATION
  Report Type: Spontaneous
  Country: JP (occurrence: JP)
  Receive Date: 20180925
  Receipt Date: 20190612
  Transmission Date: 20190711
  Serious: Yes (Other)
  Sender: FDA-Public Use
  Company Number: JP-BRISTOL-MYERS SQUIBB COMPANY-BMS-2018-086568

PATIENT
  Age: 64 Year
  Sex: Female

DRUGS (1)
  1. ORENCIA [Suspect]
     Active Substance: ABATACEPT
     Indication: RHEUMATOID ARTHRITIS
     Route: 065

REACTIONS (4)
  - Dacryoadenitis acquired [Recovered/Resolved]
  - Glaucoma [Recovered/Resolved]
  - Scleritis [Recovered/Resolved]
  - Blepharitis [Recovered/Resolved]
